FAERS Safety Report 6402362-2 (Version None)
Quarter: 2009Q4

REPORT INFORMATION
  Report Type: 
  Country: None (occurrence: None)
  Receive Date: 20091015
  Receipt Date: 20091006
  Transmission Date: 20100525
  Serious: Yes (Other)
  Sender: FDA-Public Use
  Company Number: AE-ROCHE-656614

PATIENT
  Age: 26 Year
  Sex: Female
  Weight: 83 kg

DRUGS (2)
  1. XENICAL [Suspect]
     Indication: WEIGHT CONTROL
     Dosage: FREQUENCY REPORTED AS: TWICE.
     Route: 048
     Dates: start: 20090708
  2. CALCIUM [Concomitant]

REACTIONS (1)
  - IRRITABLE BOWEL SYNDROME [None]
